FAERS Safety Report 6221535-5 (Version None)
Quarter: 2009Q2

REPORT INFORMATION
  Report Type: 
  Country: None (occurrence: None)
  Receive Date: 20090608
  Receipt Date: 20090526
  Transmission Date: 20091009
  Serious: Yes (Death)
  Sender: FDA-Public Use
  Company Number: FR-WYE-H09537309

PATIENT
  Age: 91 Year
  Sex: Female

DRUGS (13)
  1. PANTOPRAZOLE SODIUM [Suspect]
     Dosage: 40 MG 1X PER  1 TOT ORAL
     Route: 048
     Dates: start: 20090507, end: 20090507
  2. ACUPAN [Suspect]
     Dosage: ORAL
     Route: 048
     Dates: start: 20090507, end: 20090507
  3. IRBESARTAN [Suspect]
     Dosage: 150 MG STENGTH - FREQUENCY UNSPECIFIED ORAL
     Route: 048
     Dates: start: 20090507, end: 20090507
  4. DISCOTRINE (GLYCERYL TRINITRATE, ) [Suspect]
     Dosage: 5 MG STRENGTH - FREQUENCY UNSPECIFIED TRANSDERMAL
     Route: 062
     Dates: start: 20090507, end: 20090507
  5. ACETAMINOPHEN [Suspect]
     Dosage: 1000 MG 1X PER 1 TOT ORAL
     Route: 048
     Dates: start: 20090507, end: 20090507
  6. DOMEPERIDONE (DOMPERIDONE, ) [Suspect]
     Dosage: 30 ML 1X PER 1 TOT ORAL
     Route: 048
     Dates: start: 20090507, end: 20090507
  7. LANTUS [Suspect]
     Dosage: 8 IU 1X PER 1 TOT SC
     Route: 058
     Dates: start: 20090507, end: 20090507
  8. LOVENOX [Suspect]
     Dosage: 4000 IU - FREQUENCY NOT SPECIFIED SC
     Route: 058
     Dates: start: 20090507, end: 20090507
  9. RILUTEK [Suspect]
     Dosage: 50 MG STRENGTH - FREQUENCY UNSPECIFIED ORAL
     Route: 048
     Dates: start: 20090507, end: 20090507
  10. SECTRAL [Suspect]
     Dosage: ORAL
     Route: 048
     Dates: start: 20090507, end: 20090507
  11. OXAZEPAM [Suspect]
     Dosage: ORAL
     Route: 048
     Dates: start: 20090507, end: 20090507
  12. LASIX [Concomitant]
  13. FORLAX (MACROGOL) [Concomitant]

REACTIONS (4)
  - CARDIO-RESPIRATORY ARREST [None]
  - COMA [None]
  - SOMNOLENCE [None]
  - WRONG DRUG ADMINISTERED [None]
